FAERS Safety Report 6908526-3 (Version None)
Quarter: 2010Q3

REPORT INFORMATION
  Report Type: 
  Country: None (occurrence: None)
  Receive Date: 20100805
  Receipt Date: 20100723
  Transmission Date: 20110219
  Serious: Yes (Hospitalization)
  Sender: FDA-Public Use
  Company Number: DE-ELI_LILLY_AND_COMPANY-DE201007005640

PATIENT
  Age: 64 Year
  Sex: Male

DRUGS (19)
  1. CYMBALTA [Suspect]
     Indication: SCHIZOAFFECTIVE DISORDER
     Dosage: 30 MG, UNKNOWN
     Route: 048
     Dates: start: 20100209, end: 20100503
  2. VALPROATE SODIUM [Concomitant]
     Dosage: 150 MG, DAILY (1/D)
     Route: 048
     Dates: start: 20100222, end: 20100223
  3. VALPROATE SODIUM [Concomitant]
     Dosage: 300 MG, DAILY (1/D)
     Route: 048
     Dates: start: 20100224, end: 20100225
  4. VALPROATE SODIUM [Concomitant]
     Dosage: 450 MG, DAILY (1/D)
     Route: 048
     Dates: start: 20100226, end: 20100226
  5. VALPROATE SODIUM [Concomitant]
     Dosage: 600 MG, DAILY (1/D)
     Route: 048
     Dates: start: 20100227, end: 20100227
  6. VALPROATE SODIUM [Concomitant]
     Dosage: 900 MG, DAILY (1/D)
     Route: 048
     Dates: start: 20100228, end: 20100314
  7. VALPROATE SODIUM [Concomitant]
     Dosage: 600 MG, DAILY (1/D)
     Route: 048
     Dates: start: 20100315, end: 20100315
  8. VALPROATE SODIUM [Concomitant]
     Dosage: 300 MG, DAILY (1/D)
     Route: 048
     Dates: start: 20100316, end: 20100316
  9. TAXILAN [Concomitant]
     Dosage: 400 MG, DAILY (1/D)
     Route: 048
     Dates: start: 20091221, end: 20100311
  10. TAXILAN [Concomitant]
     Dosage: 300 MG, DAILY (1/D)
     Route: 048
     Dates: start: 20100312
  11. LYOGEN [Concomitant]
     Dosage: 30 MG, DAILY (1/D)
     Route: 048
     Dates: start: 20100113, end: 20100125
  12. LYOGEN [Concomitant]
     Dosage: 20 MG, DAILY (1/D)
     Route: 048
     Dates: start: 20100126, end: 20100214
  13. LYOGEN [Concomitant]
     Dosage: 8 MG, DAILY (1/D)
     Route: 048
     Dates: start: 20100215, end: 20100303
  14. LYOGEN [Concomitant]
     Dosage: 6 MG, DAILY (1/D)
     Route: 048
     Dates: start: 20100304, end: 20100311
  15. LYOGEN [Concomitant]
     Dosage: 3 MG, DAILY (1/D)
     Route: 048
     Dates: start: 20100312, end: 20100414
  16. AKINETON [Concomitant]
     Dosage: 4 MG, DAILY (1/D)
     Route: 048
     Dates: start: 20100209, end: 20100426
  17. IBUPROFEN [Concomitant]
     Indication: ANALGESIC THERAPY
     Dosage: 800 MG, DAILY (1/D)
     Route: 048
     Dates: start: 20091225, end: 20100123
  18. IBUPROFEN [Concomitant]
     Dosage: 400 MG, DAILY (1/D)
     Route: 048
     Dates: start: 20100124, end: 20100325
  19. VIANI [Concomitant]
     Indication: ASTHMA PROPHYLAXIS
     Dosage: 2 D/F, UNK
     Dates: start: 20100107

REACTIONS (7)
  - ASTHENIA [None]
  - CHRONIC OBSTRUCTIVE PULMONARY DISEASE [None]
  - DRUG INTERACTION [None]
  - ENCEPHALOPATHY [None]
  - FEELING OF DESPAIR [None]
  - SCIATICA [None]
  - SOCIAL AVOIDANT BEHAVIOUR [None]
